FAERS Safety Report 18433053 (Version 1)
Quarter: 2020Q4

REPORT INFORMATION
  Report Type: Spontaneous
  Country: US (occurrence: US)
  Receive Date: 20201027
  Receipt Date: 20201027
  Transmission Date: 20210114
  Serious: Yes (Other)
  Sender: FDA-Public Use
  Company Number: US-ALLERGAN-2040456US

PATIENT
  Sex: Female

DRUGS (1)
  1. KYBELLA [Suspect]
     Active Substance: DEOXYCHOLIC ACID
     Indication: LIPOLYSIS PROCEDURE
     Dosage: UNK UNK, SINGLE
     Dates: start: 20200907, end: 20200907

REACTIONS (2)
  - Condition aggravated [Not Recovered/Not Resolved]
  - Hyperplasia [Not Recovered/Not Resolved]

NARRATIVE: CASE EVENT DATE: 202010
